FAERS Safety Report 11282765 (Version 2)
Quarter: 2015Q3

REPORT INFORMATION
  Report Type: Report from Study
  Country: US (occurrence: US)
  Receive Date: 20150720
  Receipt Date: 20150724
  Transmission Date: 20151125
  Serious: No
  Sender: FDA-Public Use
  Company Number: US-ASTRAZENECA-2015SE67475

PATIENT
  Sex: Male

DRUGS (2)
  1. NEXIUM [Suspect]
     Active Substance: ESOMEPRAZOLE MAGNESIUM
     Route: 048
  2. PEPTO-BISMOL [Concomitant]
     Active Substance: BISMUTH SUBSALICYLATE\CALCIUM CARBONATE

REACTIONS (1)
  - Faeces discoloured [Unknown]
